FAERS Safety Report 12782795 (Version 1)
Quarter: 2016Q3

REPORT INFORMATION
  Report Type: Spontaneous
  Country: US (occurrence: US)
  Receive Date: 20160927
  Receipt Date: 20160927
  Transmission Date: 20161109
  Serious: Yes (Other)
  Sender: FDA-Public Use
  Company Number: US-AMGEN-USASP2016128095

PATIENT
  Age: 69 Year
  Sex: Female

DRUGS (1)
  1. PROLIA [Suspect]
     Active Substance: DENOSUMAB
     Indication: OSTEOPOROSIS POSTMENOPAUSAL
     Dosage: 60 MG, Q6MO
     Route: 065
     Dates: start: 201512

REACTIONS (6)
  - Contusion [Recovering/Resolving]
  - Jaw disorder [Unknown]
  - Tooth disorder [Unknown]
  - Tibia fracture [Recovering/Resolving]
  - Cough [Unknown]
  - Road traffic accident [Unknown]

NARRATIVE: CASE EVENT DATE: 201604
